FAERS Safety Report 14480117 (Version 1)
Quarter: 2018Q1

REPORT INFORMATION
  Report Type: Spontaneous
  Country: FR (occurrence: FR)
  Receive Date: 20180202
  Receipt Date: 20180202
  Transmission Date: 20180509
  Serious: Yes (Death)
  Sender: FDA-Public Use
  Company Number: PHHY2018FR013612

PATIENT
  Age: 68 Year
  Sex: Male
  Weight: 184 kg

DRUGS (8)
  1. CEFTRIAXONE SODIUM. [Suspect]
     Active Substance: CEFTRIAXONE SODIUM
     Indication: OSTEITIS
     Route: 042
  2. ZYVOXID [Suspect]
     Active Substance: LINEZOLID
     Indication: OSTEITIS
     Route: 042
  3. FLAGYL [Suspect]
     Active Substance: METRONIDAZOLE\METRONIDAZOLE HYDROCHLORIDE
     Indication: OSTEITIS
     Route: 042
  4. INIPOMP [Suspect]
     Active Substance: PANTOPRAZOLE SODIUM
     Indication: PROPHYLAXIS
     Dosage: 1 DF, QD
     Route: 042
     Dates: start: 20171026, end: 20171102
  5. PERFALGAN [Suspect]
     Active Substance: ACETAMINOPHEN
     Indication: ANALGESIC THERAPY
     Route: 042
     Dates: start: 20171026, end: 20171103
  6. HEPARINE SODIUM PANPHARMA [Suspect]
     Active Substance: HEPARIN SODIUM
     Indication: ATRIAL FIBRILLATION
     Route: 042
  7. LASILIX [Suspect]
     Active Substance: FUROSEMIDE
     Indication: SODIUM RETENTION
     Route: 042
  8. NORADRENALINE [Suspect]
     Active Substance: NOREPINEPHRINE
     Indication: CIRCULATORY COLLAPSE
     Route: 042

REACTIONS (2)
  - Shock haemorrhagic [Fatal]
  - Retroperitoneal haematoma [Fatal]

NARRATIVE: CASE EVENT DATE: 20171102
